FAERS Safety Report 10480419 (Version 1)
Quarter: 2014Q3

REPORT INFORMATION
  Report Type: Spontaneous
  Country: IT (occurrence: IT)
  Receive Date: 20140929
  Receipt Date: 20140929
  Transmission Date: 20150326
  Serious: Yes (Death)
  Sender: FDA-Public Use
  Company Number: IT-ROCHE-1467181

PATIENT
  Age: 70 Year
  Sex: Male

DRUGS (2)
  1. CHLORPROMAZINE [Suspect]
     Active Substance: CHLORPROMAZINE
     Indication: PRODUCT USED FOR UNKNOWN INDICATION
     Route: 065
     Dates: start: 20140924, end: 20140924
  2. DIAZEPAM. [Suspect]
     Active Substance: DIAZEPAM
     Indication: PRODUCT USED FOR UNKNOWN INDICATION
     Route: 065
     Dates: start: 20140924, end: 20140924

REACTIONS (4)
  - Confusional state [Unknown]
  - Cardiac arrest [Fatal]
  - Aggression [Unknown]
  - Agitation [Unknown]

NARRATIVE: CASE EVENT DATE: 20140924
